FAERS Safety Report 9522713 (Version 1)
Quarter: 2013Q1

REPORT INFORMATION
  Report Type: Spontaneous
  Country: US (occurrence: None)
  Receive Date: 20130305
  Receipt Date: 20130305
  Transmission Date: 20140127
  Serious: Yes (Other)
  Sender: FDA-Public Use
  Company Number: 163-21880-12064053

PATIENT
  Age: 89 Year
  Sex: Female

DRUGS (5)
  1. REVLIMID (LENALIDOMIDE) (CAPSULES) [Suspect]
     Indication: CHRONIC LYMPHOCYTIC LEUKAEMIA
     Route: 048
     Dates: start: 20120228
  2. LEVOFLOXACIN (LEVOFLOXACIN) (UNKNOWN) [Concomitant]
  3. ACETAMINOPHEN (PARACETAMOL) (UNKNOWN) (PARACETAMOL) [Concomitant]
  4. MUCINEX (GUAIFENESIN) (UNKNOWN) [Concomitant]
  5. KLONOPIN (CLONAZEPAM) (UNKNOWN) [Concomitant]

REACTIONS (2)
  - Oedema peripheral [None]
  - Rash maculo-papular [None]
